FAERS Safety Report 6366514-2 (Version None)
Quarter: 2009Q3

REPORT INFORMATION
  Report Type: 
  Country: None (occurrence: None)
  Receive Date: 20090921
  Receipt Date: 20090908
  Transmission Date: 20100115
  Serious: Yes (Hospitalization, Other)
  Sender: FDA-Public Use
  Company Number: US-BAYER-200931471GPV

PATIENT
  Age: 56 Year
  Sex: Male

DRUGS (7)
  1. CIPROFLAXACIN [Suspect]
     Indication: URINARY TRACT INFECTION
     Route: 051
     Dates: start: 20090801, end: 20090801
  2. SAXAGLIPTIN OR PLACEBO [Suspect]
     Indication: TYPE 2 DIABETES MELLITUS
     Route: 048
     Dates: start: 20090502, end: 20090721
  3. DIOVAN [Concomitant]
     Indication: DRUG USE FOR UNKNOWN INDICATION
     Route: 065
     Dates: start: 20070829, end: 20090801
  4. DIOVAN [Concomitant]
     Route: 065
     Dates: start: 20090801
  5. NORVASC [Concomitant]
     Indication: DRUG USE FOR UNKNOWN INDICATION
     Route: 065
     Dates: start: 20070829, end: 20090801
  6. NORVASC [Concomitant]
     Route: 065
     Dates: start: 20090801
  7. HARNAL [Concomitant]
     Indication: BENIGN PROSTATIC HYPERPLASIA
     Route: 065
     Dates: start: 20090803

REACTIONS (8)
  - BENIGN PROSTATIC HYPERPLASIA [None]
  - BLOOD CREATINE PHOSPHOKINASE INCREASED [None]
  - MALAISE [None]
  - MYALGIA [None]
  - PYREXIA [None]
  - RHABDOMYOLYSIS [None]
  - SEPSIS [None]
  - URINARY TRACT INFECTION [None]
